FAERS Safety Report 8879886 (Version 1)
Quarter: 2012Q4

REPORT INFORMATION
  Report Type: 
  Country: BE (occurrence: BE)
  Receive Date: 20121101
  Receipt Date: 20121101
  Transmission Date: 20130627
  Serious: Yes (Other)
  Sender: FDA-Public Use
  Company Number: BE-JNJFOC-20120811770

PATIENT
  Age: 10 Year

DRUGS (5)
  1. RISPERDAL [Suspect]
     Indication: PRODUCT USED FOR UNKNOWN INDICATION
     Route: 065
  2. RISPERDAL [Suspect]
     Indication: PRODUCT USED FOR UNKNOWN INDICATION
     Route: 065
  3. RISPERDAL [Suspect]
     Indication: PRODUCT USED FOR UNKNOWN INDICATION
     Dosage: decreased by 0.1 mL per week
     Route: 065
  4. METHYLPHENIDATE [Suspect]
     Indication: PRODUCT USED FOR UNKNOWN INDICATION
     Route: 065
  5. METHYLPHENIDATE [Suspect]
     Indication: PRODUCT USED FOR UNKNOWN INDICATION
     Route: 065

REACTIONS (7)
  - Thrombocytopenia [Recovering/Resolving]
  - Leukopenia [Recovering/Resolving]
  - Blood prolactin increased [Recovering/Resolving]
  - Blood insulin decreased [Recovering/Resolving]
  - Decreased appetite [Unknown]
  - Initial insomnia [Unknown]
  - Salivary hypersecretion [Unknown]
